FAERS Safety Report 10804289 (Version 1)
Quarter: 2015Q1

REPORT INFORMATION
  Report Type: Report from Study
  Country: US (occurrence: US)
  Receive Date: 20150217
  Receipt Date: 20150217
  Transmission Date: 20150721
  Serious: No
  Sender: FDA-Public Use
  Company Number: US-ABBVIE-14K-163-1253191-00

PATIENT
  Age: 65 Year
  Sex: Male

DRUGS (2)
  1. BLOOD PRESSURE PILL [Concomitant]
     Indication: PRODUCT USED FOR UNKNOWN INDICATION
  2. HUMIRA [Suspect]
     Active Substance: ADALIMUMAB
     Indication: PSORIASIS

REACTIONS (2)
  - Cough [Not Recovered/Not Resolved]
  - Sputum discoloured [Unknown]

NARRATIVE: CASE EVENT DATE: 201406
